FAERS Safety Report 7128225-5 (Version None)
Quarter: 2010Q4

REPORT INFORMATION
  Report Type: 
  Country: None (occurrence: None)
  Receive Date: 20101130
  Receipt Date: 20100927
  Transmission Date: 20110411
  Serious: Yes (Other)
  Sender: FDA-Public Use
  Company Number: JP-AMGEN-US388233

PATIENT

DRUGS (8)
  1. DENOSUMAB [Suspect]
     Indication: METASTASES TO BONE
     Dosage: UNK BLINDED, Q4WK
     Route: 058
     Dates: start: 20090730, end: 20091218
  2. TRASTUZUMAB [Concomitant]
     Indication: BREAST CANCER
     Dosage: UNK UNK, UNK
     Route: 041
     Dates: start: 20060609
  3. TYKERB [ INGREDIENT UNKNOWN ] [Concomitant]
     Indication: BREAST CANCER
     Dosage: 1000 MG, QD
     Route: 048
     Dates: start: 20100114
  4. INSULIN ASPART [Concomitant]
     Indication: DIABETES MELLITUS
     Dosage: UNK UNK, BID
     Route: 058
     Dates: start: 20070407
  5. LANDSEN [Concomitant]
     Indication: NEUROPATHY PERIPHERAL
     Dosage: 1 MG, QD
     Route: 048
     Dates: start: 20090226
  6. CALCICHEW D3 [Concomitant]
     Indication: MEDICAL DIET
     Dosage: 2 UNK, QD
     Route: 048
     Dates: start: 20070607, end: 20100121
  7. VINORELBINE [Concomitant]
     Dosage: UNK UNK, UNK
     Dates: start: 20090129, end: 20091126
  8. LOXOPROFEN SODIUM [Concomitant]
     Dosage: UNK UNK, UNK
     Dates: start: 20090711, end: 20090717

REACTIONS (8)
  - CONDITION AGGRAVATED [None]
  - DEVICE RELATED INFECTION [None]
  - FISTULA DISCHARGE [None]
  - INADEQUATE ANALGESIA [None]
  - ORAL CAVITY FISTULA [None]
  - OSTEONECROSIS [None]
  - OSTEONECROSIS OF JAW [None]
  - PERIODONTITIS [None]
